FAERS Safety Report 12812807 (Version 1)
Quarter: 2016Q4

REPORT INFORMATION
  Report Type: Spontaneous
  Country: GB (occurrence: GB)
  Receive Date: 20161005
  Receipt Date: 20161005
  Transmission Date: 20170207
  Serious: Yes (Other)
  Sender: FDA-Public Use
  Company Number: GB-GALDERMA-GB16006550

PATIENT
  Age: 50 Year
  Sex: Male
  Weight: 82.55 kg

DRUGS (2)
  1. ESOMEPRAZOLE [Concomitant]
     Active Substance: ESOMEPRAZOLE
     Indication: PRODUCT USED FOR UNKNOWN INDICATION
  2. SOOLANTRA [Suspect]
     Active Substance: IVERMECTIN
     Indication: ROSACEA
     Dosage: 1DF
     Route: 061
     Dates: start: 20160801, end: 20160831

REACTIONS (3)
  - Eye irritation [Recovered/Resolved]
  - Visual impairment [Recovered/Resolved with Sequelae]
  - Headache [Recovered/Resolved]

NARRATIVE: CASE EVENT DATE: 20160804
